FAERS Safety Report 17038306 (Version 1)
Quarter: 2019Q4

REPORT INFORMATION
  Report Type: Spontaneous
  Country: JP (occurrence: JP)
  Receive Date: 20191115
  Receipt Date: 20191115
  Transmission Date: 20200122
  Serious: Yes (Hospitalization, Other)
  Sender: FDA-Public Use
  Company Number: JP-009507513-1910JPN000523J

PATIENT
  Age: 73 Year
  Sex: Female
  Weight: 47 kg

DRUGS (8)
  1. DENOTAS [Concomitant]
     Active Substance: CALCIUM CARBONATE\CHOLECALCIFEROL\MAGNESIUM CARBONATE
     Indication: METASTASES TO BONE
     Dosage: 2 DOSAGE FORM, QD
     Route: 048
     Dates: start: 20180702
  2. KEYTRUDA [Suspect]
     Active Substance: PEMBROLIZUMAB
     Indication: NON-SMALL CELL LUNG CANCER
     Dosage: 200 MILLIGRAM, Q3W
     Route: 041
     Dates: start: 20180629, end: 20181207
  3. LOXOPROFEN [Concomitant]
     Active Substance: LOXOPROFEN
     Indication: PAIN MANAGEMENT
     Dosage: 60 MILLIGRAM, TID
     Route: 048
     Dates: start: 20180604, end: 20180830
  4. FUROSEMIDE. [Concomitant]
     Active Substance: FUROSEMIDE
     Indication: POLYURIA
     Dosage: 20 MILLIGRAM, QD
     Route: 048
     Dates: start: 20180512, end: 20180719
  5. OXYCONTIN [Concomitant]
     Active Substance: OXYCODONE HYDROCHLORIDE
     Indication: PAIN MANAGEMENT
     Dosage: 5 MILLIGRAM, BID
     Route: 048
     Dates: start: 20180705, end: 20180719
  6. DAPAGLIFLOZIN. [Concomitant]
     Active Substance: DAPAGLIFLOZIN
     Indication: DIABETES MELLITUS MANAGEMENT
     Dosage: 5 MILLIGRAM, QD
     Route: 048
     Dates: start: 20180720, end: 20190119
  7. VONOPRAZAN FUMARATE [Concomitant]
     Active Substance: VONOPRAZAN FUMURATE
     Indication: PAIN MANAGEMENT
     Dosage: 20 MILLIGRAM, QD
     Route: 048
     Dates: start: 20180615
  8. OPSO [Concomitant]
     Active Substance: MORPHINE HYDROCHLORIDE
     Indication: PAIN MANAGEMENT
     Dosage: 5 MILLIGRAM, PRN
     Route: 048
     Dates: start: 20180704, end: 20180714

REACTIONS (2)
  - Adrenal disorder [Not Recovered/Not Resolved]
  - Interstitial lung disease [Recovered/Resolved]

NARRATIVE: CASE EVENT DATE: 20181206
